FAERS Safety Report 6720485-5 (Version None)
Quarter: 2010Q2

REPORT INFORMATION
  Report Type: 
  Country: None (occurrence: None)
  Receive Date: 20100511
  Receipt Date: 20100510
  Transmission Date: 20101027
  Serious: Yes (Hospitalization)
  Sender: FDA-Public Use
  Company Number: FR-ROCHE-569005

PATIENT
  Sex: Female

DRUGS (2)
  1. LARIAM [Suspect]
     Indication: DRUG USE FOR UNKNOWN INDICATION
     Route: 048
     Dates: start: 20050701, end: 20050801
  2. XANAX [Concomitant]
     Indication: ANXIETY

REACTIONS (1)
  - RHABDOMYOLYSIS [None]
